FAERS Safety Report 12094234 (Version 1)
Quarter: 2016Q1

REPORT INFORMATION
  Report Type: Spontaneous
  Country: FR (occurrence: FR)
  Receive Date: 20160219
  Receipt Date: 20160219
  Transmission Date: 20160526
  Serious: Yes (Hospitalization)
  Sender: FDA-Public Use
  Company Number: PHHY2016FR020005

PATIENT
  Age: 51 Year
  Sex: Male

DRUGS (13)
  1. FUROSEMIDE. [Concomitant]
     Active Substance: FUROSEMIDE
     Indication: PRODUCT USED FOR UNKNOWN INDICATION
     Dosage: 20 MG, QD
     Route: 065
  2. LOVENOX [Concomitant]
     Active Substance: ENOXAPARIN SODIUM
     Indication: PHLEBITIS DEEP
     Dosage: 8000 IU, BID
     Route: 065
  3. LEVOFLOXABOL [Concomitant]
     Indication: PRODUCT USED FOR UNKNOWN INDICATION
     Route: 065
  4. AMOXICILLINE PANPHARMA [Suspect]
     Active Substance: AMOXICILLIN
     Indication: PNEUMOCOCCAL INFECTION
     Dosage: 2 G, TID
     Route: 042
     Dates: start: 20151110, end: 20151113
  5. DALACINE - PER ORAL [Concomitant]
     Active Substance: CLINDAMYCIN\CLINDAMYCIN PHOSPHATE
     Indication: PRODUCT USED FOR UNKNOWN INDICATION
     Route: 065
  6. CRESTOR [Concomitant]
     Active Substance: ROSUVASTATIN CALCIUM
     Indication: PRODUCT USED FOR UNKNOWN INDICATION
     Dosage: 1 DF, QD
     Route: 065
  7. LOVENOX [Concomitant]
     Active Substance: ENOXAPARIN SODIUM
     Dosage: 4000 IU, BID
     Route: 065
  8. TRIATEC [Concomitant]
     Active Substance: RAMIPRIL
     Indication: PRODUCT USED FOR UNKNOWN INDICATION
     Dosage: 1 DF, QD
     Route: 065
  9. AMOXICILLIN CLAVULANIC ACID SANDOZ [Suspect]
     Active Substance: AMOXICILLIN\CLAVULANIC ACID
     Indication: PNEUMOCOCCAL INFECTION
     Dosage: 2 G, TID
     Route: 042
     Dates: start: 20151106, end: 20151110
  10. PREVISCAN [Concomitant]
     Active Substance: FLUINDIONE
     Indication: PRODUCT USED FOR UNKNOWN INDICATION
     Dosage: 1 DF, QD
     Route: 065
  11. SPIRONOLACTONE. [Concomitant]
     Active Substance: SPIRONOLACTONE
     Indication: PRODUCT USED FOR UNKNOWN INDICATION
     Dosage: 1 DF, QD
     Route: 065
  12. GENTAMICIN. [Concomitant]
     Active Substance: GENTAMICIN
     Indication: PNEUMOCOCCAL SEPSIS
     Route: 065
  13. TENORMIN [Concomitant]
     Active Substance: ATENOLOL
     Indication: PRODUCT USED FOR UNKNOWN INDICATION
     Dosage: 1 DF, QD
     Route: 065

REACTIONS (4)
  - Anti factor V antibody [Recovered/Resolved]
  - Prothrombin time shortened [Recovered/Resolved]
  - Coagulation factor decreased [Recovered/Resolved]
  - Coagulation factor VII level decreased [Recovered/Resolved]

NARRATIVE: CASE EVENT DATE: 20151113
